FAERS Safety Report 5652711-8 (Version None)
Quarter: 2008Q1

REPORT INFORMATION
  Report Type: 
  Country: None (occurrence: None)
  Receive Date: 20080305
  Receipt Date: 20080305
  Transmission Date: 20080703
  Serious: Yes (Hospitalization)
  Sender: FDA-Public Use
  Company Number: None

PATIENT
  Sex: Female
  Weight: 50 kg

DRUGS (14)
  1. RITUXIMAB [Suspect]
     Dosage: 1,000 MG TWO DOSES IV
     Route: 042
     Dates: start: 20070820
  2. RITUXIMAB [Suspect]
     Dosage: 1,000 MG TWO DOSES IV
     Route: 042
     Dates: start: 20070912
  3. RITUXIMAB [Suspect]
  4. DICLOFENAC [Concomitant]
  5. METHOTREXATE [Concomitant]
  6. FOLIC ACID [Concomitant]
  7. LISINOPRIL [Concomitant]
  8. ATENOLOL [Concomitant]
  9. HYDROXICHLOROTHIAZIDE [Concomitant]
  10. HYDROXICHLOROQUINE [Concomitant]
  11. GLUCOTROL [Concomitant]
  12. METFORMIN [Concomitant]
  13. FERROUS SULFATE TAB [Concomitant]
  14. CALCIUM/VIT D [Concomitant]

REACTIONS (2)
  - ANAEMIA [None]
  - URINARY TRACT INFECTION [None]
